FAERS Safety Report 7167108-1 (Version None)
Quarter: 2010Q4

REPORT INFORMATION
  Report Type: 
  Country: None (occurrence: None)
  Receive Date: 20101216
  Receipt Date: 20101207
  Transmission Date: 20110411
  Serious: Yes (Death, Hospitalization)
  Sender: FDA-Public Use
  Company Number: US-GENZYME-FABR-1001680

PATIENT
  Sex: Male
  Weight: 73 kg

DRUGS (1)
  1. FABRAZYME [Suspect]
     Indication: FABRY'S DISEASE
     Dosage: 70 MG, Q2W
     Route: 042
     Dates: start: 20061218

REACTIONS (2)
  - DEATH [None]
  - HOSPITALISATION [None]
